FAERS Safety Report 6699404-6 (Version None)
Quarter: 2010Q2

REPORT INFORMATION
  Report Type: 
  Country: None (occurrence: None)
  Receive Date: 20100426
  Receipt Date: 20100419
  Transmission Date: 20101027
  Serious: Yes (Other)
  Sender: FDA-Public Use
  Company Number: 2010AL002323

PATIENT
  Age: 46 Year
  Sex: Female

DRUGS (1)
  1. METOCLOPRAMIDE [Suspect]

REACTIONS (4)
  - INCORRECT DRUG ADMINISTRATION DURATION [None]
  - INJURY [None]
  - INTENTIONAL DRUG MISUSE [None]
  - STEREOTYPY [None]
